FAERS Safety Report 5649474-9 (Version None)
Quarter: 2008Q1

REPORT INFORMATION
  Report Type: 
  Country: None (occurrence: None)
  Receive Date: 20080131
  Receipt Date: 20071107
  Transmission Date: 20080703
  Serious: No
  Sender: FDA-Public Use
  Company Number: US200709001924

PATIENT
  Age: 77 Year
  Sex: Female
  Weight: 59.9 kg

DRUGS (6)
  1. BYETTA [Suspect]
     Indication: TYPE 2 DIABETES MELLITUS
     Dosage: SEE IMAGE
     Route: 058
     Dates: start: 20050101, end: 20050101
  2. BYETTA [Suspect]
     Indication: TYPE 2 DIABETES MELLITUS
     Dosage: SEE IMAGE
     Route: 058
     Dates: start: 20050101, end: 20050101
  3. BYETTA [Suspect]
     Indication: TYPE 2 DIABETES MELLITUS
     Dosage: SEE IMAGE
     Route: 058
     Dates: start: 20050101, end: 20070101
  4. BYETTA [Suspect]
     Indication: TYPE 2 DIABETES MELLITUS
     Dosage: SEE IMAGE
     Route: 058
     Dates: start: 20070601, end: 20070101
  5. BYETTA [Suspect]
     Dosage: 5 UG, 2/D, SUBCUTANEOUS
     Route: 058
     Dates: start: 20070101
  6. GLYBURIDE [Concomitant]

REACTIONS (10)
  - ABDOMINAL PAIN UPPER [None]
  - BLOOD GLUCOSE DECREASED [None]
  - BLOOD GLUCOSE INCREASED [None]
  - CONSTIPATION [None]
  - FEELING JITTERY [None]
  - HYPERHIDROSIS [None]
  - MALAISE [None]
  - PRESYNCOPE [None]
  - TREMOR [None]
  - WEIGHT DECREASED [None]
